FAERS Safety Report 19250516 (Version 1)
Quarter: 2021Q2

REPORT INFORMATION
  Report Type: Spontaneous
  Country: US (occurrence: US)
  Receive Date: 20210512
  Receipt Date: 20210512
  Transmission Date: 20210717
  Serious: No
  Sender: FDA-Public Use
  Company Number: US-RIGEL PHARMACEUTICALS, INC.-2021FOS000039

PATIENT
  Sex: Female

DRUGS (1)
  1. TAVALISSE [Suspect]
     Active Substance: FOSTAMATINIB
     Indication: IMMUNE THROMBOCYTOPENIA
     Dosage: 100 MG, BID
     Route: 048
     Dates: start: 20190227, end: 20210207

REACTIONS (6)
  - Pain [Unknown]
  - Constipation [Unknown]
  - Flatulence [Unknown]
  - Illness [Unknown]
  - Intentional product misuse [Unknown]
  - Diarrhoea [Unknown]
